FAERS Safety Report 17088505 (Version 2)
Quarter: 2020Q4

REPORT INFORMATION
  Report Type: Report from Study
  Country: GB (occurrence: GB)
  Receive Date: 20191128
  Receipt Date: 20201126
  Transmission Date: 20210113
  Serious: Yes (Other)
  Sender: FDA-Public Use
  Company Number: PHHY2019GB225854

PATIENT
  Sex: Male

DRUGS (2)
  1. INSULIN [Concomitant]
     Active Substance: INSULIN NOS
     Indication: TYPE 2 DIABETES MELLITUS
     Dosage: UNK
     Route: 065
  2. HYRIMOZ [Suspect]
     Active Substance: ADALIMUMAB-ADAZ
     Indication: PSORIATIC ARTHROPATHY
     Dosage: UNK UNK, Q3W
     Route: 065
     Dates: start: 20190514

REACTIONS (6)
  - Immune system disorder [Unknown]
  - Skin mass [Unknown]
  - Nodule [Unknown]
  - Myocardial infarction [Unknown]
  - Infection [Unknown]
  - Lower respiratory tract infection [Unknown]
